FAERS Safety Report 17510863 (Version 5)
Quarter: 2020Q4

REPORT INFORMATION
  Report Type: Spontaneous
  Country: BR (occurrence: BR)
  Receive Date: 20200306
  Receipt Date: 20201030
  Transmission Date: 20210113
  Serious: Yes (Other)
  Sender: FDA-Public Use
  Company Number: BR-ASTRAZENECA-2020SE14402

PATIENT
  Age: 609 Month
  Sex: Male

DRUGS (9)
  1. ESOMEPRAZOL [Suspect]
     Active Substance: ESOMEPRAZOLE
     Indication: GASTRITIS EROSIVE
     Dosage: TAKE THE MEDICINE ON AN EMPTY STOMACH.
     Route: 048
     Dates: end: 202003
  2. DIGESTIVE [Concomitant]
     Route: 065
  3. PANTOPRAZOLE [Concomitant]
     Active Substance: PANTOPRAZOLE
     Route: 065
  4. ESOMEPRAZOL [Suspect]
     Active Substance: ESOMEPRAZOLE
     Indication: GASTRITIS EROSIVE
     Dosage: TAKE THE MEDICINE ON AN EMPTY STOMACH.
     Route: 048
     Dates: start: 20191001, end: 20191201
  5. DOMPERIDONE [Concomitant]
     Active Substance: DOMPERIDONE
     Indication: GASTRITIS
     Dosage: UNKNOWN
     Route: 065
  6. RANITIDIN [Concomitant]
     Active Substance: RANITIDINE HYDROCHLORIDE
     Dosage: UNKNOWN
     Route: 065
     Dates: start: 2019
  7. ESOMEPRAZOL [Suspect]
     Active Substance: ESOMEPRAZOLE
     Indication: GASTRITIS
     Dosage: TAKE THE MEDICINE ON AN EMPTY STOMACH.
     Route: 048
     Dates: start: 20191001, end: 20191201
  8. ESOMEPRAZOL [Suspect]
     Active Substance: ESOMEPRAZOLE
     Indication: GASTRITIS
     Dosage: TAKE THE MEDICINE ON AN EMPTY STOMACH.
     Route: 048
     Dates: end: 202003
  9. PURAN [Concomitant]
     Active Substance: LEVOTHYROXINE SODIUM
     Indication: THYROID DISORDER
     Route: 065

REACTIONS (7)
  - Gastric cancer [Unknown]
  - Weight decreased [Unknown]
  - Abdominal pain [Not Recovered/Not Resolved]
  - Gastritis [Not Recovered/Not Resolved]
  - Inability to afford medication [Unknown]
  - Chest pain [Unknown]
  - Asthenia [Unknown]

NARRATIVE: CASE EVENT DATE: 201911
